FAERS Safety Report 8771662 (Version 1)
Quarter: 2012Q4

REPORT INFORMATION
  Report Type: 
  Country: US (occurrence: US)
  Receive Date: 20120906
  Receipt Date: 20120906
  Transmission Date: 20130627
  Serious: No
  Sender: FDA-Public Use
  Company Number: US-B.I. PHARMACEUTICALS,INC./RIDGEFIELD-2012-BP-21263BP

PATIENT
  Age: 68 Year
  Sex: Male
  Weight: 110 kg

DRUGS (6)
  1. PRADAXA [Suspect]
     Indication: THROMBOSIS
     Dosage: 300 mg
     Route: 048
     Dates: start: 20120801, end: 20120826
  2. ZANTAC (RANITIDINE HYDROCHLORIDE) [Suspect]
     Indication: GASTROOESOPHAGEAL REFLUX DISEASE
     Route: 048
     Dates: start: 201103
  3. LOTENSIN [Concomitant]
     Indication: BLOOD PRESSURE ABNORMAL
     Dates: start: 2002
  4. NORCO [Concomitant]
     Indication: BACK PAIN
     Route: 048
     Dates: start: 2009
  5. ALLOPURINOL [Concomitant]
     Indication: ARTHROPATHY
     Dosage: 300 mg
     Route: 048
     Dates: start: 2002
  6. AMLODIPINE [Concomitant]
     Indication: BLOOD PRESSURE ABNORMAL
     Dosage: 10 mg
     Route: 048
     Dates: start: 2002

REACTIONS (1)
  - Cardiac imaging procedure [Recovered/Resolved]
